FAERS Safety Report 7372127-6 (Version None)
Quarter: 2011Q1

REPORT INFORMATION
  Report Type: 
  Country: None (occurrence: None)
  Receive Date: 20110324
  Receipt Date: 20110315
  Transmission Date: 20110831
  Serious: Yes (Hospitalization)
  Sender: FDA-Public Use
  Company Number: US-ROCHE-759206

PATIENT
  Sex: Female
  Weight: 63.5 kg

DRUGS (4)
  1. BONIVA [Suspect]
     Route: 048
  2. BONIVA [Suspect]
     Route: 040
     Dates: start: 20100409
  3. BONIVA [Suspect]
     Route: 040
     Dates: start: 20100806
  4. BONIVA [Suspect]
     Route: 048
     Dates: start: 20050101

REACTIONS (1)
  - OSTEOARTHRITIS [None]
